FAERS Safety Report 7151824-1 (Version None)
Quarter: 2010Q4

REPORT INFORMATION
  Report Type: 
  Country: None (occurrence: None)
  Receive Date: 20101210
  Receipt Date: 20101029
  Transmission Date: 20110411
  Serious: Yes (Death, Life-Threatening, Other)
  Sender: FDA-Public Use
  Company Number: US-BAXTER-2010BH002352

PATIENT
  Age: 65 Year
  Sex: Male

DRUGS (2)
  1. HEPARIN SODIUM INJECTION [Suspect]
     Indication: PANCREATICODUODENECTOMY
     Route: 065
     Dates: start: 20080311
  2. ATORVASTATIN [Concomitant]
     Indication: PRODUCT USED FOR UNKNOWN INDICATION
     Route: 065

REACTIONS (22)
  - ABDOMINAL SEPSIS [None]
  - ATRIAL FIBRILLATION [None]
  - CARDIO-RESPIRATORY ARREST [None]
  - COMA [None]
  - DEEP VEIN THROMBOSIS [None]
  - DEPRESSION [None]
  - DIPLOPIA [None]
  - EMPYEMA [None]
  - ESCHERICHIA BACTERAEMIA [None]
  - LYMPHOMA [None]
  - MULTI-ORGAN FAILURE [None]
  - PANCREATIC CARCINOMA [None]
  - PLEURAL EFFUSION [None]
  - PNEUMONIA ASPIRATION [None]
  - PNEUMONIA KLEBSIELLA [None]
  - POST PROCEDURAL BILE LEAK [None]
  - RASH MACULO-PAPULAR [None]
  - RENAL FAILURE [None]
  - RESPIRATORY FAILURE [None]
  - SEPTIC SHOCK [None]
  - SUICIDAL IDEATION [None]
  - ULCER HAEMORRHAGE [None]
